FAERS Safety Report 5222714-6 (Version None)
Quarter: 2007Q1

REPORT INFORMATION
  Report Type: 
  Country: None (occurrence: None)
  Receive Date: 20070129
  Receipt Date: 20060426
  Transmission Date: 20070707
  Serious: No
  Sender: FDA-Public Use
  Company Number: US-GLAXOSMITHKLINE-A0603374A

PATIENT
  Age: 46 Year
  Sex: Female

DRUGS (3)
  1. COMBIVIR [Suspect]
     Indication: HIV INFECTION
     Dosage: 1TAB TWICE PER DAY
     Route: 048
     Dates: start: 20060423, end: 20060425
  2. LEXIVA [Concomitant]
  3. VIREAD [Concomitant]

REACTIONS (2)
  - PALPITATIONS [None]
  - VOMITING [None]
